FAERS Safety Report 6030142-9 (Version None)
Quarter: 2009Q1

REPORT INFORMATION
  Report Type: 
  Country: None (occurrence: None)
  Receive Date: 20090107
  Receipt Date: 20081231
  Transmission Date: 20090719
  Serious: No
  Sender: FDA-Public Use
  Company Number: US-MERCK-0812USA02626

PATIENT
  Age: 70 Year
  Sex: Male
  Weight: 107 kg

DRUGS (10)
  1. JANUVIA [Suspect]
     Indication: TYPE 2 DIABETES MELLITUS
     Route: 048
     Dates: start: 20081117, end: 20081209
  2. TENEX [Concomitant]
     Route: 065
  3. PLAVIX [Concomitant]
     Route: 065
  4. ASPIRIN [Concomitant]
     Route: 065
  5. METFORMIN HYDROCHLORIDE [Concomitant]
     Route: 065
  6. ACTOS [Concomitant]
     Route: 065
  7. FLOMAX (MORNIFLUMATE) [Concomitant]
     Route: 065
  8. VYTORIN [Concomitant]
     Route: 048
  9. GLIPIZIDE [Concomitant]
     Route: 065
  10. VESICARE [Concomitant]
     Route: 065

REACTIONS (2)
  - PRURITUS [None]
  - URTICARIA [None]
